FAERS Safety Report 20558651 (Version 1)
Quarter: 2022Q1

REPORT INFORMATION
  Report Type: Other
  Country: GB (occurrence: GB)
  Receive Date: 20220307
  Receipt Date: 20220307
  Transmission Date: 20220423
  Serious: No
  Sender: FDA-Public Use
  Company Number: GB-MHRA-MED-202202161127010370-AUDXA

PATIENT
  Age: 20 Year
  Sex: Female

DRUGS (1)
  1. SERTRALINE HYDROCHLORIDE [Suspect]
     Active Substance: SERTRALINE HYDROCHLORIDE
     Indication: Depressed mood
     Dosage: 50 MILLIGRAM, QD
     Route: 048
     Dates: start: 20220214

REACTIONS (3)
  - Increased appetite [Not Recovered/Not Resolved]
  - Yawning [Not Recovered/Not Resolved]
  - Nausea [Not Recovered/Not Resolved]

NARRATIVE: CASE EVENT DATE: 20220214
